FAERS Safety Report 4913505-1 (Version None)
Quarter: 2006Q1

REPORT INFORMATION
  Report Type: 
  Country: None (occurrence: None)
  Receive Date: 20060210
  Receipt Date: 20060127
  Transmission Date: 20060701
  Serious: Yes (Hospitalization)
  Sender: FDA-Public Use
  Company Number: 2006020006

PATIENT
  Age: 75 Year
  Sex: Male

DRUGS (4)
  1. DORAL (QUAZEPAM) (QUAZEPAM) (TABLETS) [Suspect]
     Indication: DEMENTIA ALZHEIMER'S TYPE
     Dosage: 5 MG, 1 IN 1 D, ORAL
     Route: 048
  2. PAXIL [Suspect]
     Indication: DEMENTIA ALZHEIMER'S TYPE
     Dosage: 20 MG, 1 IN 1 D, ORAL
     Route: 048
  3. TRIHEXYPHENIDYL HCL [Suspect]
     Indication: DEMENTIA ALZHEIMER'S TYPE
     Dosage: 4 MG, 1 IN 1 D
  4. LEVOMEPROMAZINE (LEVOMEPROMAZINE) [Suspect]
     Indication: DEMENTIA ALZHEIMER'S TYPE
     Dosage: 15 MG, 1 IN 1 D

REACTIONS (5)
  - AGGRESSION [None]
  - HALLUCINATION, VISUAL [None]
  - HYPERKINESIA [None]
  - PORIOMANIA [None]
  - SERUM AMYLOID A PROTEIN INCREASED [None]
